FAERS Safety Report 10795242 (Version 1)
Quarter: 2015Q1

REPORT INFORMATION
  Report Type: Spontaneous
  Country: US (occurrence: US)
  Receive Date: 20150214
  Receipt Date: 20150214
  Transmission Date: 20150721
  Serious: No
  Sender: FDA-Public Use
  Company Number: US-GLAXOSMITHKLINE-A1080193A

PATIENT

DRUGS (5)
  1. VITAMIN D [Concomitant]
     Active Substance: CHOLECALCIFEROL
  2. VENTOLIN [Suspect]
     Active Substance: ALBUTEROL SULFATE
     Indication: ASTHMA
  3. NASONEX [Concomitant]
     Active Substance: MOMETASONE FUROATE
  4. ADVAIR HFA [Suspect]
     Active Substance: FLUTICASONE PROPIONATE\SALMETEROL XINAFOATE
     Indication: ASTHMA
     Dosage: 250/50
  5. SYNTHROID [Concomitant]
     Active Substance: LEVOTHYROXINE SODIUM

REACTIONS (8)
  - Wheezing [Unknown]
  - Sinusitis [Unknown]
  - Dyspnoea [Unknown]
  - Product quality issue [Unknown]
  - Malaise [Unknown]
  - Tremor [Unknown]
  - Feeling jittery [Unknown]
  - Drug ineffective [Unknown]
